FAERS Safety Report 5826043-9 (Version None)
Quarter: 2008Q3

REPORT INFORMATION
  Report Type: 
  Country: None (occurrence: None)
  Receive Date: 20080729
  Receipt Date: 20080722
  Transmission Date: 20090109
  Serious: Yes (Hospitalization)
  Sender: FDA-Public Use
  Company Number: JP-JNJFOC-20080702102

PATIENT
  Sex: Female
  Weight: 51 kg

DRUGS (5)
  1. ITRIZOLE [Suspect]
     Indication: ONYCHOMYCOSIS
     Dosage: PULSE THERAPY
     Route: 048
  2. LEVOTHYROXINE SODIUM [Concomitant]
     Indication: HYPOTHYROIDISM
     Route: 048
  3. DIOVAN [Concomitant]
     Indication: HYPERTENSION
     Route: 048
  4. ADALAT [Concomitant]
     Indication: HYPERTENSION
     Route: 048
  5. MAGMITT [Concomitant]
     Indication: CONSTIPATION
     Route: 048

REACTIONS (2)
  - HYPOKALAEMIA [None]
  - INTESTINAL ISCHAEMIA [None]
